FAERS Safety Report 19108102 (Version 3)
Quarter: 2021Q3

REPORT INFORMATION
  Report Type: Other
  Country: BR (occurrence: BR)
  Receive Date: 20210408
  Receipt Date: 20210705
  Transmission Date: 20211014
  Serious: Yes (Other)
  Sender: FDA-Public Use
  Company Number: BR-ROCHE-2805553

PATIENT
  Age: 29 Year
  Sex: Female

DRUGS (7)
  1. XOLAIR [Suspect]
     Active Substance: OMALIZUMAB
     Route: 058
     Dates: start: 20200425
  2. XOLAIR [Suspect]
     Active Substance: OMALIZUMAB
     Dosage: 150 MG (APPLIES 1 AMPOULES AND HALF EVERY 15 DAYS)
     Route: 058
     Dates: start: 2011
  3. SPIRIVA [Concomitant]
     Active Substance: TIOTROPIUM BROMIDE MONOHYDRATE
     Indication: ASTHMA
     Dosage: 1 DF (PUFF), BID (DID NOT REMEMBER DOSE)
     Route: 055
     Dates: start: 2019
  4. XOLAIR [Suspect]
     Active Substance: OMALIZUMAB
     Route: 058
     Dates: start: 20200511
  5. XOLAIR [Suspect]
     Active Substance: OMALIZUMAB
     Dosage: 150 MG (APPLIES 1 AMPOULES AND HALF EVERY 15 DAYS)
     Route: 058
     Dates: start: 2020
  6. XOLAIR [Suspect]
     Active Substance: OMALIZUMAB
     Indication: ASTHMA
     Dosage: 150 MG (APPLIES 1 AMPOULES AND HALF EVERY 15 DAYS)
     Route: 058
     Dates: start: 20171122
  7. FOSTAIR [Concomitant]
     Active Substance: BECLOMETHASONE\FORMOTEROL
     Indication: ASTHMA
     Dosage: 1 DF (PUFF), BID (DID NOT REMEMBER DOSE)
     Route: 055
     Dates: start: 2018

REACTIONS (9)
  - Hyperaemia [Recovering/Resolving]
  - Drug intolerance [Recovered/Resolved]
  - Adverse drug reaction [Unknown]
  - Feeling abnormal [Recovered/Resolved]
  - Asthmatic crisis [Recovered/Resolved]
  - Incorrect dose administered [Unknown]
  - Dyspnoea [Recovering/Resolving]
  - Pruritus [Recovered/Resolved]
  - Pain [Recovered/Resolved]

NARRATIVE: CASE EVENT DATE: 2020
